FAERS Safety Report 9309395 (Version 1)
Quarter: 2013Q2

REPORT INFORMATION
  Report Type: Spontaneous
  Country: US (occurrence: US)
  Receive Date: 20130525
  Receipt Date: 20130525
  Transmission Date: 20140414
  Serious: No
  Sender: FDA-Public Use
  Company Number: US-BRISTOL-MYERS SQUIBB COMPANY-18583781

PATIENT
  Age: 54 Year
  Sex: Male
  Weight: 140.59 kg

DRUGS (3)
  1. BYDUREON 2MG VIAL + SYRINGE [Suspect]
     Indication: TYPE 2 DIABETES MELLITUS
     Route: 058
     Dates: start: 20121223
  2. GLIPIZIDE [Concomitant]
     Indication: TYPE 2 DIABETES MELLITUS
     Route: 048
  3. METFORMIN [Concomitant]
     Indication: TYPE 2 DIABETES MELLITUS
     Route: 048

REACTIONS (5)
  - Feeling abnormal [Recovering/Resolving]
  - Blood glucose decreased [Recovering/Resolving]
  - Injection site inflammation [Recovered/Resolved]
  - Injection site nodule [Recovering/Resolving]
  - Injection site erythema [Recovered/Resolved]
